FAERS Safety Report 7656516-8 (Version None)
Quarter: 2011Q3

REPORT INFORMATION
  Report Type: 
  Country: None (occurrence: None)
  Receive Date: 20110804
  Receipt Date: 20101006
  Transmission Date: 20111222
  Serious: No
  Sender: FDA-Public Use
  Company Number: US-BAUSCH-2010BL005650

PATIENT
  Age: 80 Year
  Sex: Female

DRUGS (5)
  1. CALCIUM WITH VITAMIN D [Concomitant]
  2. OPCON-A [Suspect]
     Indication: DRY EYE
     Route: 047
     Dates: start: 20101002, end: 20101002
  3. LEVOXYL [Concomitant]
  4. PROTONIX [Concomitant]
     Indication: GASTROOESOPHAGEAL REFLUX DISEASE
  5. OPCON-A [Suspect]
     Indication: OFF LABEL USE
     Route: 047
     Dates: start: 20101002, end: 20101002

REACTIONS (6)
  - EYE IRRITATION [None]
  - MYDRIASIS [None]
  - VISION BLURRED [None]
  - WRONG DRUG ADMINISTERED [None]
  - DRUG LABEL CONFUSION [None]
  - OCULAR HYPERAEMIA [None]
